FAERS Safety Report 9649174 (Version 1)
Quarter: 2013Q4

REPORT INFORMATION
  Report Type: Spontaneous
  Country: US (occurrence: US)
  Receive Date: 20131028
  Receipt Date: 20131028
  Transmission Date: 20140711
  Serious: No
  Sender: FDA-Public Use
  Company Number: -SAAVPROD-POMP-1003231

PATIENT
  Age: 41 Year
  Sex: Male

DRUGS (3)
  1. ALGLUCOSIDASE ALFA [Suspect]
     Indication: GLYCOGEN STORAGE DISEASE TYPE II
     Dosage: 20 U/KG, Q2W DOSE:20 UNIT(S)/KILOGRAM BODYWEIGHT
     Route: 042
  2. STEROIDS [Concomitant]
     Indication: PREMEDICATION
     Dosage: UNK
     Route: 065
  3. LORATADINE [Concomitant]
     Indication: PREMEDICATION
     Dosage: UNK
     Route: 065

REACTIONS (1)
  - Urticaria [Unknown]
